FAERS Safety Report 11759241 (Version 1)
Quarter: 2015Q4

REPORT INFORMATION
  Report Type: Spontaneous
  Country: US (occurrence: US)
  Receive Date: 20151120
  Receipt Date: 20151120
  Transmission Date: 20160304
  Serious: No
  Sender: FDA-Public Use
  Company Number: US-ELI_LILLY_AND_COMPANY-US201210001080

PATIENT
  Sex: Female

DRUGS (1)
  1. FORTEO [Suspect]
     Active Substance: TERIPARATIDE
     Dosage: UNK
     Dates: start: 20120810

REACTIONS (8)
  - Feeling abnormal [Unknown]
  - Drug hypersensitivity [Unknown]
  - Bone pain [Unknown]
  - Toothache [Unknown]
  - Mood swings [Unknown]
  - Pain in extremity [Unknown]
  - Increased tendency to bruise [Unknown]
  - Hot flush [Unknown]

NARRATIVE: CASE EVENT DATE: 201209
